FAERS Safety Report 5537344-6 (Version None)
Quarter: 2007Q4

REPORT INFORMATION
  Report Type: 
  Country: None (occurrence: None)
  Receive Date: 20071207
  Receipt Date: 20071129
  Transmission Date: 20080405
  Serious: Yes (Other)
  Sender: FDA-Public Use
  Company Number: B0498163A

PATIENT
  Sex: Female

DRUGS (2)
  1. NYTOL ONE A NIGHT CAPLETS 50MG [Suspect]
     Indication: ANXIETY
     Route: 065
  2. DIAZEPAM [Concomitant]

REACTIONS (7)
  - ANXIETY [None]
  - DEPENDENCE [None]
  - DISTURBANCE IN ATTENTION [None]
  - FEELING ABNORMAL [None]
  - INTENTIONAL OVERDOSE [None]
  - STOMACH DISCOMFORT [None]
  - WITHDRAWAL SYNDROME [None]
